FAERS Safety Report 11107181 (Version 3)
Quarter: 2015Q4

REPORT INFORMATION
  Report Type: Report from Study
  Country: US (occurrence: US)
  Receive Date: 20150512
  Receipt Date: 20151001
  Transmission Date: 20160304
  Serious: Yes (Hospitalization, Other)
  Sender: FDA-Public Use
  Company Number: US-GILEAD-2015-0147154

PATIENT
  Age: 70 Year
  Sex: Female

DRUGS (7)
  1. REVATIO [Concomitant]
     Active Substance: SILDENAFIL CITRATE
  2. AMBRISENTAN [Suspect]
     Active Substance: AMBRISENTAN
     Indication: PULMONARY ARTERIAL HYPERTENSION
     Dosage: 10 MG, QD
     Route: 065
     Dates: start: 20111109
  3. LASIX [Concomitant]
     Active Substance: FUROSEMIDE
  4. SILDENAFIL. [Concomitant]
     Active Substance: SILDENAFIL
  5. AMBRISENTAN [Suspect]
     Active Substance: AMBRISENTAN
     Indication: SLEEP APNOEA SYNDROME
  6. VENTAVIS [Concomitant]
     Active Substance: ILOPROST
  7. OXYGEN. [Concomitant]
     Active Substance: OXYGEN

REACTIONS (3)
  - Right ventricular failure [Unknown]
  - Fluid overload [Unknown]
  - Malaise [Unknown]
